FAERS Safety Report 5412220-8 (Version None)
Quarter: 2007Q3

REPORT INFORMATION
  Report Type: 
  Country: None (occurrence: None)
  Receive Date: 20070810
  Receipt Date: 20070810
  Transmission Date: 20080115
  Serious: Yes (Hospitalization)
  Sender: FDA-Public Use
  Company Number: None

PATIENT
  Age: 62 Year
  Sex: Male

DRUGS (1)
  1. SIMVASTATIN [Suspect]
     Indication: HYPERLIPIDAEMIA
     Dosage: 80MG EVERY DAY PO
     Route: 048
     Dates: start: 20070725, end: 20070730

REACTIONS (5)
  - ANXIETY [None]
  - CHEST DISCOMFORT [None]
  - DRY MOUTH [None]
  - RHABDOMYOLYSIS [None]
  - TONGUE COATED [None]
